FAERS Safety Report 9353116 (Version 1)
Quarter: 2013Q2

REPORT INFORMATION
  Report Type: Spontaneous
  Country: US (occurrence: None)
  Receive Date: 20130617
  Receipt Date: 20130617
  Transmission Date: 20140414
  Serious: No
  Sender: FDA-Public Use
  Company Number: None

PATIENT
  Age: 64 None
  Sex: Male

DRUGS (5)
  1. METFORMIN [Suspect]
     Indication: GLUCOSE TOLERANCE IMPAIRED
     Route: 048
     Dates: start: 20090701, end: 20130610
  2. SIMVASTATIN [Concomitant]
  3. METRO PROLOL [Concomitant]
  4. ALEGRA [Concomitant]
  5. FISH OIL [Concomitant]

REACTIONS (2)
  - Abdominal pain [None]
  - Product contamination [None]
